FAERS Safety Report 7157686-0 (Version None)
Quarter: 2010Q4

REPORT INFORMATION
  Report Type: 
  Country: None (occurrence: None)
  Receive Date: 20101214
  Receipt Date: 20100315
  Transmission Date: 20110411
  Serious: No
  Sender: FDA-Public Use
  Company Number: US-ASTRAZENECA-2010SE11325

PATIENT
  Age: 67 Year
  Sex: Female
  Weight: 49.4 kg

DRUGS (1)
  1. CRESTOR [Suspect]
     Route: 048
     Dates: start: 20100301, end: 20100301

REACTIONS (6)
  - EYE INFECTION [None]
  - EYE PRURITUS [None]
  - MUSCLE SPASMS [None]
  - OCULAR HYPERAEMIA [None]
  - PRURITUS [None]
  - URTICARIA [None]
